FAERS Safety Report 4755087-3 (Version None)
Quarter: 2005Q3

REPORT INFORMATION
  Report Type: 
  Country: None (occurrence: None)
  Receive Date: 20050825
  Receipt Date: 20050816
  Transmission Date: 20060218
  Serious: Yes (Other)
  Sender: FDA-Public Use
  Company Number: 12075

PATIENT
  Sex: Male

DRUGS (1)
  1. METHOTREXATE [Suspect]

REACTIONS (6)
  - CHROMOSOME ABNORMALITY [None]
  - DEVELOPMENTAL DELAY [None]
  - FEBRILE CONVULSION [None]
  - MATERNAL DRUGS AFFECTING FOETUS [None]
  - POSTMATURE BABY [None]
  - PREGNANCY [None]
